FAERS Safety Report 17036103 (Version 1)
Quarter: 2019Q4

REPORT INFORMATION
  Report Type: Spontaneous
  Country: ES (occurrence: ES)
  Receive Date: 20191115
  Receipt Date: 20191115
  Transmission Date: 20200122
  Serious: Yes (Hospitalization, Other)
  Sender: FDA-Public Use
  Company Number: ES-009507513-1911ESP004102

PATIENT
  Age: 64 Year
  Sex: Male
  Weight: 59.2 kg

DRUGS (1)
  1. PEMBROLIZUMAB. [Suspect]
     Active Substance: PEMBROLIZUMAB
     Indication: LUNG INFILTRATION MALIGNANT
     Dosage: 200 MILLIGRAM, EVERY 3 WEEKS
     Route: 042
     Dates: start: 20180405

REACTIONS (17)
  - Seborrhoeic dermatitis [Unknown]
  - Lymphadenopathy [Unknown]
  - Hepatotoxicity [Recovered/Resolved]
  - Therapy partial responder [Unknown]
  - Retroperitoneal lymphadenopathy [Unknown]
  - Hydronephrosis [Unknown]
  - Oedema peripheral [Unknown]
  - Weight decreased [Unknown]
  - Pruritus [Unknown]
  - Venous thrombosis [Unknown]
  - Pityriasis [Unknown]
  - Erythema [Unknown]
  - Thrombocytopenia [Unknown]
  - Rash [Unknown]
  - Skin toxicity [Unknown]
  - Dysphagia [Unknown]
  - Retroperitoneal lymphadenopathy [Unknown]

NARRATIVE: CASE EVENT DATE: 2018
